FAERS Safety Report 21244854 (Version 1)
Quarter: 2022Q3

REPORT INFORMATION
  Report Type: Report from Study
  Country: CA (occurrence: CA)
  Receive Date: 20220823
  Receipt Date: 20220823
  Transmission Date: 20221026
  Serious: Yes (Hospitalization, Other)
  Sender: FDA-Public Use
  Company Number: CA-ALNYLAM PHARMACEUTICALS, INC.-ALN-2022-002952

PATIENT

DRUGS (6)
  1. GIVLAARI [Suspect]
     Active Substance: GIVOSIRAN SODIUM
     Indication: Porphyria acute
     Dosage: 2.5 MILLIGRAM/KILOGRAM
     Route: 058
  2. UNSPECIFIED INGREDIENT [Suspect]
     Active Substance: UNSPECIFIED INGREDIENT
     Indication: COVID-19 immunisation
  3. IRON [Concomitant]
     Active Substance: IRON
     Indication: Product used for unknown indication
  4. LIFITEGRAST [Concomitant]
     Active Substance: LIFITEGRAST
     Indication: Product used for unknown indication
  5. PIMECROLIMUS [Concomitant]
     Active Substance: PIMECROLIMUS
     Indication: Product used for unknown indication
  6. VITAMIN D [Concomitant]
     Active Substance: VITAMIN D NOS
     Indication: Product used for unknown indication

REACTIONS (3)
  - Porphyria acute [Unknown]
  - Platelet count decreased [Unknown]
  - Pain in extremity [Unknown]
